FAERS Safety Report 4432326-X (Version None)
Quarter: 2004Q3

REPORT INFORMATION
  Report Type: 
  Country: None (occurrence: None)
  Receive Date: 20040820
  Receipt Date: 20040813
  Transmission Date: 20050211
  Serious: Yes (Hospitalization, Disabling, Other)
  Sender: FDA-Public Use
  Company Number: KII-2004-0013002

PATIENT
  Age: 25 Year
  Sex: Male

DRUGS (8)
  1. OXYCODONE HCL [Suspect]
     Indication: PAIN
     Dosage: ORAL
     Route: 048
  2. MORPHINE SULFATE [Suspect]
     Indication: PAIN
     Dosage: ORAL
     Route: 048
  3. FENTANYL [Suspect]
     Indication: BACK PAIN
     Dosage: TRANSDERMAL
     Route: 062
  4. SSRI () [Concomitant]
     Indication: DEPRESSION
  5. BENZODIAZEPINES DERIVATIVES () [Concomitant]
  6. METAMFETAMINE (METAMFETAMINE) [Suspect]
     Dosage: ORAL
     Route: 048
  7. ACETAMINOPHEN [Suspect]
  8. SALICYLATES (SALICYLATES) [Suspect]

REACTIONS (22)
  - AGITATION [None]
  - ALANINE AMINOTRANSFERASE INCREASED [None]
  - ANOXIC ENCEPHALOPATHY [None]
  - ASPARTATE AMINOTRANSFERASE INCREASED [None]
  - BLOOD CALCIUM DECREASED [None]
  - BLOOD CREATINE PHOSPHOKINASE INCREASED [None]
  - COMA [None]
  - DEPRESSED LEVEL OF CONSCIOUSNESS [None]
  - EXTENSOR PLANTAR RESPONSE [None]
  - GENERAL PHYSICAL HEALTH DETERIORATION [None]
  - HYPERKALAEMIA [None]
  - HYPERTENSION [None]
  - HYPOXIA [None]
  - INJURY [None]
  - MULTIPLE DRUG OVERDOSE [None]
  - NYSTAGMUS [None]
  - PCO2 DECREASED [None]
  - RENAL FAILURE [None]
  - RESPIRATORY DISORDER [None]
  - SINUS DISORDER [None]
  - SINUS TACHYCARDIA [None]
  - TREMOR [None]
